FAERS Safety Report 4963611-0 (Version None)
Quarter: 2006Q1

REPORT INFORMATION
  Report Type: 
  Country: None (occurrence: None)
  Receive Date: 20060201
  Receipt Date: 20051122
  Transmission Date: 20060701
  Serious: No
  Sender: FDA-Public Use
  Company Number: 2005PV004736

PATIENT
  Age: 54 Year
  Sex: Female
  Weight: 88.905 kg

DRUGS (4)
  1. BYETTA [Suspect]
     Indication: DIABETES MELLITUS NON-INSULIN-DEPENDENT
     Dosage: 5 MCG, BID, SC
     Route: 058
     Dates: start: 20051111, end: 20051119
  2. METFORMIN [Concomitant]
  3. STARLIX [Concomitant]
  4. DIOVAN [Concomitant]

REACTIONS (11)
  - ABDOMINAL PAIN UPPER [None]
  - DECREASED APPETITE [None]
  - DIZZINESS [None]
  - DRY MOUTH [None]
  - DYSGEUSIA [None]
  - GLOSSODYNIA [None]
  - NAUSEA [None]
  - ORAL PAIN [None]
  - PRURITUS [None]
  - SWELLING FACE [None]
  - TONGUE ULCERATION [None]
